FAERS Safety Report 7819609-8 (Version None)
Quarter: 2011Q4

REPORT INFORMATION
  Report Type: 
  Country: None (occurrence: None)
  Receive Date: 20111018
  Receipt Date: 20111018
  Transmission Date: 20120403
  Serious: Yes (Other)
  Sender: FDA-Public Use
  Company Number: None

PATIENT
  Sex: Female
  Weight: 121.56 kg

DRUGS (1)
  1. ACTOS [Suspect]
     Indication: TYPE 2 DIABETES MELLITUS
     Dosage: 30MG
     Route: 048
     Dates: start: 20110903, end: 20111013

REACTIONS (4)
  - FATIGUE [None]
  - MYALGIA [None]
  - VISUAL IMPAIRMENT [None]
  - HYPERSOMNIA [None]
